APPROVED DRUG PRODUCT: PROCHLORPERAZINE EDISYLATE
Active Ingredient: PROCHLORPERAZINE EDISYLATE
Strength: EQ 5MG BASE/ML
Dosage Form/Route: INJECTABLE;INJECTION
Application: A086348 | Product #001
Applicant: WYETH AYERST LABORATORIES
Approved: Approved Prior to Jan 1, 1982 | RLD: No | RS: No | Type: DISCN